FAERS Safety Report 5456354-0 (Version None)
Quarter: 2007Q3

REPORT INFORMATION
  Report Type: 
  Country: None (occurrence: None)
  Receive Date: 20070918
  Receipt Date: 20061116
  Transmission Date: 20080115
  Serious: No
  Sender: FDA-Public Use
  Company Number: US-ASTRAZENECA-2006UW24764

PATIENT
  Age: 44 Year
  Sex: Female

DRUGS (7)
  1. SEROQUEL [Suspect]
     Route: 048
  2. LITHIUM [Concomitant]
  3. ATIVAN [Concomitant]
  4. LAMICTAL [Concomitant]
  5. PROTONIX [Concomitant]
  6. ZYPREXA [Concomitant]
  7. COGENTIN [Concomitant]

REACTIONS (1)
  - MASS [None]
